FAERS Safety Report 10267461 (Version 1)
Quarter: 2014Q2

REPORT INFORMATION
  Report Type: Spontaneous
  Country: US (occurrence: None)
  Receive Date: 20140626
  Receipt Date: 20140626
  Transmission Date: 20141212
  Serious: Yes (Life-Threatening, Hospitalization)
  Sender: FDA-Public Use
  Company Number: None

PATIENT
  Age: 70 Year
  Sex: Female
  Weight: 79.8 kg

DRUGS (9)
  1. METFORMIN [Suspect]
     Indication: DIABETES MELLITUS
     Route: 048
     Dates: start: 20140623
  2. ACYCLOVIR [Concomitant]
  3. SIMVASTATIN [Concomitant]
  4. CLONIDINE [Concomitant]
  5. GLIPIZIDE [Concomitant]
  6. BENAZEPRIL [Concomitant]
  7. AMLODIPINE [Concomitant]
  8. ATENOLOL [Concomitant]
  9. HYDRALAZINE [Concomitant]

REACTIONS (8)
  - Nausea [None]
  - Vomiting [None]
  - Diarrhoea [None]
  - Renal failure acute [None]
  - Metabolic acidosis [None]
  - Shock [None]
  - Pulseless electrical activity [None]
  - Cardiac arrest [None]
